FAERS Safety Report 13014237 (Version 1)
Quarter: 2016Q4

REPORT INFORMATION
  Report Type: Spontaneous
  Country: US (occurrence: US)
  Receive Date: 20161209
  Receipt Date: 20161209
  Transmission Date: 20170207
  Serious: Yes (Other)
  Sender: FDA-Public Use
  Company Number: US-009507513-1612USA003487

PATIENT
  Age: 74 Year
  Sex: Male
  Weight: 87.3 kg

DRUGS (1)
  1. KEYTRUDA [Suspect]
     Active Substance: PEMBROLIZUMAB
     Indication: HEAD AND NECK CANCER
     Dosage: DOSE/FREQUENCY: ^200MG EVERY 3 WEEKS^
     Route: 042
     Dates: start: 20160921, end: 20161102

REACTIONS (1)
  - Malignant neoplasm progression [Not Recovered/Not Resolved]

NARRATIVE: CASE EVENT DATE: 20161102
